FAERS Safety Report 22380423 (Version 1)
Quarter: 2023Q2

REPORT INFORMATION
  Report Type: Spontaneous
  Country: DE (occurrence: DE)
  Receive Date: 20230529
  Receipt Date: 20230529
  Transmission Date: 20230722
  Serious: Yes (Death, Other)
  Sender: FDA-Public Use
  Company Number: DE-JNJFOC-20230533515

PATIENT
  Sex: Male
  Weight: 88 kg

DRUGS (5)
  1. DEXAMETHASONE [Suspect]
     Active Substance: DEXAMETHASONE
     Indication: Plasma cell myeloma
     Dosage: DATE OF LAST DOSE PRIOR TO EVENT 13/MAR/2023
     Route: 065
     Dates: start: 20230213, end: 20230313
  2. DARATUMUMAB [Suspect]
     Active Substance: DARATUMUMAB
     Indication: Plasma cell myeloma
     Dosage: LINE 2
     Route: 040
     Dates: start: 20230213, end: 20230313
  3. DARATUMUMAB [Suspect]
     Active Substance: DARATUMUMAB
     Dosage: LINE 2
     Route: 040
     Dates: start: 20220815, end: 20230105
  4. DARATUMUMAB [Suspect]
     Active Substance: DARATUMUMAB
     Dosage: LINE 2
     Route: 040
     Dates: start: 20220602, end: 20220808
  5. LENALIDOMIDE [Suspect]
     Active Substance: LENALIDOMIDE
     Indication: Plasma cell myeloma
     Dosage: DATE OF LAST DOSE PRIOR TO EVENT 10-MAR-2023
     Route: 065
     Dates: end: 20230310

REACTIONS (1)
  - Neoplasm [Fatal]

NARRATIVE: CASE EVENT DATE: 20230411
